FAERS Safety Report 5088911-8 (Version None)
Quarter: 2006Q3

REPORT INFORMATION
  Report Type: 
  Country: None (occurrence: None)
  Receive Date: 20060824
  Receipt Date: 20060824
  Transmission Date: 20061208
  Serious: Yes (Hospitalization)
  Sender: FDA-Public Use
  Company Number: None

PATIENT
  Age: 59 Year
  Sex: Male
  Weight: 108.8633 kg

DRUGS (15)
  1. LISINOPRIL [Suspect]
     Indication: HYPERTENSION
     Dosage: 40 MG DAILY PO
     Route: 048
     Dates: start: 20060522, end: 20060817
  2. ALBUTEROL [Concomitant]
  3. IPRATROPIUM BROMIDE [Concomitant]
  4. CALCIUM GLUCONATE [Concomitant]
  5. CLONIDIDNE [Concomitant]
  6. DOCUSATE [Concomitant]
  7. ESCITALOPRAM OXALATE [Concomitant]
  8. FELODIPINE [Concomitant]
  9. FUROSEMIDE [Concomitant]
  10. HYDRALAZINE HCL [Concomitant]
  11. INSULIN GLARGINE [Concomitant]
  12. LISINOPRIL [Concomitant]
  13. MAGNESIUM OXIDE [Concomitant]
  14. METOCLORPARMIDE [Concomitant]
  15. METOPROLOL TARTRATE [Concomitant]

REACTIONS (4)
  - BLOOD CREATINE PHOSPHOKINASE INCREASED [None]
  - HYPERKALAEMIA [None]
  - RENAL FAILURE ACUTE [None]
  - RENAL TUBULAR ACIDOSIS [None]
